FAERS Safety Report 5340247-3 (Version None)
Quarter: 2007Q2

REPORT INFORMATION
  Report Type: 
  Country: None (occurrence: None)
  Receive Date: 20070405
  Receipt Date: 20070102
  Transmission Date: 20071010
  Serious: No
  Sender: FDA-Public Use
  Company Number: US200701000128

PATIENT
  Age: 18 Year
  Sex: Female

DRUGS (4)
  1. CYMBALTA [Suspect]
     Indication: PANIC DISORDER WITH AGORAPHOBIA
     Dosage: 30 MG, DAILY (1/D)
     Dates: start: 20061201
  2. PAXIL [Concomitant]
  3. DICYCLOMINE HCL [Concomitant]
  4. OMEPRAZOLE [Concomitant]

REACTIONS (12)
  - AGITATION [None]
  - ANXIETY [None]
  - CONFUSIONAL STATE [None]
  - DIZZINESS [None]
  - HEADACHE [None]
  - INSOMNIA [None]
  - IRRITABILITY [None]
  - LETHARGY [None]
  - RENAL PAIN [None]
  - TREMOR [None]
  - URETHRAL PAIN [None]
  - VOMITING [None]
